FAERS Safety Report 8678355 (Version 3)
Quarter: 2012Q4

REPORT INFORMATION
  Report Type: Report from Study
  Country: ES (occurrence: ES)
  Receive Date: 20120723
  Receipt Date: 20121227
  Transmission Date: 20130627
  Serious: Yes (Other)
  Sender: FDA-Public Use
  Company Number: ES-ABBOTT-12P-144-0956386-01

PATIENT
  Age: 58 Year
  Sex: Male

DRUGS (7)
  1. HUMIRA [Suspect]
     Indication: CROHN^S DISEASE
     Dosage: 160 mg baseline/80 mg week 2
     Route: 058
     Dates: start: 20070907
  2. HUMIRA [Suspect]
     Route: 058
     Dates: end: 20090630
  3. SUMIAL [Concomitant]
     Indication: HEADACHE
     Dates: start: 201004
  4. AZATHIOPRINE [Concomitant]
     Indication: CROHN^S DISEASE
     Route: 048
  5. 6-MP [Concomitant]
     Indication: CROHN^S DISEASE
  6. MESALAZINA [Concomitant]
     Indication: CROHN^S DISEASE
     Route: 048
  7. CERTOLIZUMAB [Concomitant]
     Indication: CROHN^S DISEASE

REACTIONS (1)
  - Crohn^s disease [Not Recovered/Not Resolved]
